FAERS Safety Report 10637398 (Version 1)
Quarter: 2014Q4

REPORT INFORMATION
  Report Type: Spontaneous
  Country: US (occurrence: None)
  Receive Date: 20141204
  Receipt Date: 20141204
  Transmission Date: 20150529
  Serious: Yes (Life-Threatening, Hospitalization, Disabling)
  Sender: FDA-Public Use
  Company Number: None

PATIENT
  Age: 59 Year
  Sex: Female
  Weight: 53.98 kg

DRUGS (1)
  1. ZAFIRLUKAST. [Suspect]
     Active Substance: ZAFIRLUKAST
     Indication: ASTHMA
     Dosage: 2 PILLS
     Route: 048
     Dates: start: 20140728, end: 20141102

REACTIONS (5)
  - Pain [None]
  - Allergic granulomatous angiitis [None]
  - Swelling [None]
  - Burning sensation [None]
  - Rash [None]

NARRATIVE: CASE EVENT DATE: 20141103
